FAERS Safety Report 6567280-8 (Version None)
Quarter: 2010Q1

REPORT INFORMATION
  Report Type: 
  Country: None (occurrence: None)
  Receive Date: 20100202
  Receipt Date: 20100122
  Transmission Date: 20100710
  Serious: Yes (Death)
  Sender: FDA-Public Use
  Company Number: JP-ROCHE-682108

PATIENT
  Age: 46 Year
  Sex: Male

DRUGS (12)
  1. CELLCEPT [Suspect]
     Route: 048
  2. PREDNISOLONE SODIUM SUCCINATE INJ [Concomitant]
     Route: 042
  3. PREDNISOLONE [Concomitant]
     Route: 048
  4. PREDNISOLONE [Concomitant]
     Route: 048
  5. PREDNISOLONE [Concomitant]
     Route: 048
  6. PREDNISOLONE [Concomitant]
     Route: 048
  7. PREDNISOLONE [Concomitant]
     Route: 048
  8. PROGRAF [Concomitant]
     Route: 042
  9. TACROLIMUS HYDRATE [Concomitant]
     Route: 048
  10. SANDIMMUNE [Concomitant]
     Route: 042
  11. CYCLOSPORINE [Concomitant]
     Dosage: DOSE: 668 MG/KG
     Route: 048
  12. SIMULECT [Concomitant]
     Route: 042

REACTIONS (1)
  - CEREBRAL INFARCTION [None]
